FAERS Safety Report 7113701-1 (Version None)
Quarter: 2010Q4

REPORT INFORMATION
  Report Type: 
  Country: None (occurrence: None)
  Receive Date: 20101119
  Receipt Date: 20101117
  Transmission Date: 20110411
  Serious: Yes (Hospitalization)
  Sender: FDA-Public Use
  Company Number: US-BRISTOL-MYERS SQUIBB COMPANY-14967780

PATIENT
  Age: 73 Year
  Sex: Male
  Weight: 83 kg

DRUGS (4)
  1. ERBITUX [Suspect]
     Indication: NON-SMALL CELL LUNG CANCER
     Dates: start: 20100125, end: 20100125
  2. CARBOPLATIN [Suspect]
     Indication: NON-SMALL CELL LUNG CANCER
     Dates: start: 20100125, end: 20100125
  3. TAXOL [Suspect]
     Indication: NON-SMALL CELL LUNG CANCER
     Dates: start: 20100125, end: 20100125
  4. RADIATION THERAPY [Suspect]
     Indication: NON-SMALL CELL LUNG CANCER
     Dosage: LAST DOSE: 28JAN2010; NO.OF.FRACTIONS: 30,NO.OF ELAPSED DAYS:17

REACTIONS (4)
  - DECREASED APPETITE [None]
  - DIARRHOEA [None]
  - NAUSEA [None]
  - VOMITING [None]
